FAERS Safety Report 24246798 (Version 1)
Quarter: 2024Q3

REPORT INFORMATION
  Report Type: Spontaneous
  Country: GB (occurrence: GB)
  Receive Date: 20240826
  Receipt Date: 20240826
  Transmission Date: 20241016
  Serious: Yes (Death)
  Sender: CELLTRION
  Company Number: GB-CELLTRION INC.-2024GB019943

PATIENT

DRUGS (1)
  1. YUFLYMA [Suspect]
     Active Substance: ADALIMUMAB-AATY
     Indication: Rheumatoid arthritis
     Dosage: 40MG PRE-FILLED PEN
     Route: 058
     Dates: start: 202406, end: 20240812

REACTIONS (1)
  - Death [Fatal]

NARRATIVE: CASE EVENT DATE: 20240812
